FAERS Safety Report 9648230 (Version 2)
Quarter: 2013Q4

REPORT INFORMATION
  Report Type: Spontaneous
  Country: JP (occurrence: JP)
  Receive Date: 20131028
  Receipt Date: 20131118
  Transmission Date: 20140711
  Serious: Yes (Death)
  Sender: FDA-Public Use
  Company Number: JP-BAYER-2013-128664

PATIENT
  Age: 77 Year
  Sex: Male
  Weight: 56.69 kg

DRUGS (12)
  1. NEXAVAR [Suspect]
     Indication: HEPATOCELLULAR CARCINOMA
     Dosage: 200 MG, BID
     Route: 048
     Dates: start: 20130121, end: 20130131
  2. NEXAVAR [Suspect]
     Indication: HEPATOCELLULAR CARCINOMA
     Dosage: DAILY DOSE 400 MG
     Route: 048
     Dates: start: 20130201, end: 20130204
  3. PYDOXAL [Concomitant]
     Dosage: DAILY DOSE 30 MG
     Route: 048
     Dates: start: 20130121
  4. NIKORANMART [Concomitant]
     Dosage: DAILY DOSE 15 MG
     Route: 048
     Dates: start: 2001
  5. URSO [Concomitant]
     Dosage: DAILY DOSE 300 MG
     Route: 048
     Dates: start: 2003
  6. GLAKAY [Concomitant]
     Dosage: DAILY DOSE 45 MG
     Route: 048
     Dates: start: 2003
  7. CORINAEL [Concomitant]
     Dosage: DAILY DOSE 40 MG
     Route: 048
     Dates: start: 2001
  8. HYPADIL [Concomitant]
     Dosage: DAILY DOSE 6 MG
     Route: 048
     Dates: start: 2001
  9. RENIVACE [Concomitant]
     Dosage: DAILY DOSE 5 MG
     Route: 048
     Dates: start: 2001
  10. DIART [Concomitant]
     Dosage: DAILY DOSE 30 MG
     Route: 048
     Dates: start: 2001
  11. PIETENALE [Concomitant]
     Dosage: DAILY DOSE 100 MG
     Route: 048
     Dates: start: 2001
  12. URIEF [Concomitant]
     Dosage: DAILY DOSE 4 MG
     Route: 048

REACTIONS (5)
  - Hepatic failure [Fatal]
  - Jaundice [Fatal]
  - Malaise [Fatal]
  - Abdominal discomfort [Fatal]
  - Constipation [Fatal]
